FAERS Safety Report 14794954 (Version 2)
Quarter: 2018Q2

REPORT INFORMATION
  Report Type: Spontaneous
  Country: BR (occurrence: BR)
  Receive Date: 20180423
  Receipt Date: 20180502
  Transmission Date: 20180711
  Serious: Yes (Other)
  Sender: FDA-Public Use
  Company Number: PHHY2018BR066154

PATIENT
  Age: 64 Year
  Sex: Female
  Weight: 90 kg

DRUGS (4)
  1. FORASEQ [Suspect]
     Active Substance: BUDESONIDE\FORMOTEROL FUMARATE
     Indication: ASTHMA
     Dosage: UNK
     Route: 055
  2. METFORMIN [Concomitant]
     Active Substance: METFORMIN HYDROCHLORIDE
     Indication: DIABETES MELLITUS
     Dosage: 3 DF, QD
     Route: 048
  3. FORASEQ [Suspect]
     Active Substance: BUDESONIDE\FORMOTEROL FUMARATE
     Dosage: 2 DF, QD
     Route: 055
  4. LOSARTAN. [Concomitant]
     Active Substance: LOSARTAN
     Indication: HYPERTENSION
     Dosage: 3 DF, QD
     Route: 048

REACTIONS (10)
  - Fall [Unknown]
  - Hypertension [Not Recovered/Not Resolved]
  - Limb injury [Recovered/Resolved]
  - Malaise [Unknown]
  - Tendon rupture [Not Recovered/Not Resolved]
  - Hypertension [Recovered/Resolved]
  - Drug dependence [Unknown]
  - Diabetes mellitus [Not Recovered/Not Resolved]
  - Feeling abnormal [Unknown]
  - Asthma [Unknown]

NARRATIVE: CASE EVENT DATE: 20180404
